FAERS Safety Report 8369547-X (Version None)
Quarter: 2012Q2

REPORT INFORMATION
  Report Type: 
  Country: None (occurrence: None)
  Receive Date: 20120517
  Receipt Date: 20120517
  Transmission Date: 20120825
  Serious: Yes (Other)
  Sender: FDA-Public Use
  Company Number: None

PATIENT
  Sex: Female
  Weight: 82.8 kg

DRUGS (1)
  1. SUBOXONE [Suspect]
     Indication: DRUG DEPENDENCE
     Dosage: 1.5 FILM DAILY SUBLINGUAL
     Dates: start: 20120215

REACTIONS (3)
  - GINGIVAL INFECTION [None]
  - ORAL INFECTION [None]
  - STOMATITIS [None]
